FAERS Safety Report 7411733-7 (Version None)
Quarter: 2011Q2

REPORT INFORMATION
  Report Type: 
  Country: None (occurrence: None)
  Receive Date: 20110413
  Receipt Date: 20101209
  Transmission Date: 20111010
  Serious: No
  Sender: FDA-Public Use
  Company Number: US-BRISTOL-MYERS SQUIBB COMPANY-15432685

PATIENT
  Age: 74 Year
  Sex: Female

DRUGS (4)
  1. MINOCYCLINE [Concomitant]
  2. ERBITUX [Suspect]
     Dosage: TOTAL-4 WEEKLY .
     Route: 042
  3. PREMARIN [Concomitant]
     Dosage: LOW DOSE
  4. LISINOPRIL [Concomitant]

REACTIONS (3)
  - SWELLING FACE [None]
  - APTYALISM [None]
  - RASH [None]
